FAERS Safety Report 7371258-4 (Version None)
Quarter: 2011Q1

REPORT INFORMATION
  Report Type: 
  Country: None (occurrence: None)
  Receive Date: 20110316
  Receipt Date: 20110301
  Transmission Date: 20110831
  Serious: No
  Sender: FDA-Public Use
  Company Number: 027650

PATIENT
  Sex: Female
  Weight: 85 kg

DRUGS (9)
  1. DIABECID 'I' [Concomitant]
  2. ATACAND [Suspect]
  3. DIAMICRON [Concomitant]
  4. ARAVA [Concomitant]
  5. CIMZIA [Suspect]
     Indication: RHEUMATOID ARTHRITIS
     Dosage: 1X/2 WEEKS, PREVIOUS BATCHES: 23626, 23628, 21569 SUBCUTANEOUS)
     Route: 057
     Dates: start: 20101001
  6. LOSEC /00661201/ [Concomitant]
  7. EZETIMIBE [Concomitant]
  8. FUROSEMIDE [Concomitant]
  9. CIMZIA [Suspect]

REACTIONS (5)
  - DRUG INEFFECTIVE [None]
  - PULMONARY GRANULOMA [None]
  - ARTHRALGIA [None]
  - MUSCULOSKELETAL STIFFNESS [None]
  - FATIGUE [None]
